FAERS Safety Report 11697601 (Version 1)
Quarter: 2015Q4

REPORT INFORMATION
  Report Type: Spontaneous
  Country: DK (occurrence: DK)
  Receive Date: 20151104
  Receipt Date: 20151104
  Transmission Date: 20160304
  Serious: Yes (Other)
  Sender: FDA-Public Use
  Company Number: PHHY2015DK140195

PATIENT
  Age: 74 Year
  Sex: Female

DRUGS (1)
  1. HEXAMYCIN [Suspect]
     Active Substance: GENTAMICIN
     Indication: UROSEPSIS
     Route: 042
     Dates: start: 20150729

REACTIONS (3)
  - Balance disorder [Not Recovered/Not Resolved]
  - Ototoxicity [Not Recovered/Not Resolved]
  - Dizziness [Not Recovered/Not Resolved]

NARRATIVE: CASE EVENT DATE: 20150731
